FAERS Safety Report 5823515-8 (Version None)
Quarter: 2008Q3

REPORT INFORMATION
  Report Type: 
  Country: None (occurrence: None)
  Receive Date: 20080725
  Receipt Date: 20080714
  Transmission Date: 20090109
  Serious: Yes (Other)
  Sender: FDA-Public Use
  Company Number: US-PFIZER INC-2008060000

PATIENT
  Sex: Male
  Weight: 90.7 kg

DRUGS (9)
  1. CHANTIX [Suspect]
     Indication: SMOKING CESSATION THERAPY
     Dates: start: 20080709, end: 20080714
  2. OTHER ANTIDIARRHOEALS [Concomitant]
  3. ACETYLSALICYLIC ACID SRT [Concomitant]
  4. ZEGERID [Concomitant]
  5. SIMVASTATIN [Concomitant]
  6. ALL OTHER THERAPEUTIC PRODUCTS [Concomitant]
  7. ATENOLOL [Concomitant]
  8. BUPROPION HCL [Concomitant]
  9. ALPRAZOLAM [Concomitant]

REACTIONS (2)
  - MEMORY IMPAIRMENT [None]
  - MENTAL IMPAIRMENT [None]
